FAERS Safety Report 8145265-8 (Version None)
Quarter: 2012Q1

REPORT INFORMATION
  Report Type: 
  Country: None (occurrence: None)
  Receive Date: 20120217
  Receipt Date: 20120209
  Transmission Date: 20120608
  Serious: Yes (Other)
  Sender: FDA-Public Use
  Company Number: PHHY2011DK84421

PATIENT
  Age: 7 Year
  Sex: Female

DRUGS (2)
  1. ESTRADIOL [Suspect]
     Indication: GENITAL LABIAL ADHESIONS
     Dosage: 0.6 MG/ML, QD
     Route: 061
  2. ESTRADIOL [Suspect]
     Dosage: 0.6 MG/ML, BID

REACTIONS (9)
  - VULVOVAGINAL PRURITUS [None]
  - BREAST ENLARGEMENT [None]
  - PIGMENTATION DISORDER [None]
  - HYPERAESTHESIA [None]
  - HAIR GROWTH ABNORMAL [None]
  - GENITAL LABIAL ADHESIONS [None]
  - PSEUDOPRECOCIOUS PUBERTY [None]
  - VAGINAL HAEMORRHAGE [None]
  - MOOD SWINGS [None]
